FAERS Safety Report 21110435 (Version 1)
Quarter: 2022Q3

REPORT INFORMATION
  Report Type: Spontaneous
  Country: US (occurrence: None)
  Receive Date: 20220720
  Receipt Date: 20220720
  Transmission Date: 20221027
  Serious: Yes (unspecified)
  Sender: FDA-Public Use
  Company Number: None

PATIENT
  Sex: Female

DRUGS (1)
  1. IBRANCE [Suspect]
     Active Substance: PALBOCICLIB
     Indication: Breast cancer
     Dosage: 100MG DAILY FOR 21 DAYS ORAL
     Route: 048
     Dates: start: 20220504

REACTIONS (3)
  - Chromaturia [None]
  - Peripheral swelling [None]
  - Renal disorder [None]
